FAERS Safety Report 13430809 (Version 1)
Quarter: 2017Q2

REPORT INFORMATION
  Report Type: Spontaneous
  Country: US (occurrence: US)
  Receive Date: 20170411
  Receipt Date: 20170411
  Transmission Date: 20170830
  Serious: No
  Sender: FDA-Public Use
  Company Number: None

PATIENT
  Age: 62 Year
  Sex: Male
  Weight: 79.7 kg

DRUGS (1)
  1. TELAPREVIR [Suspect]
     Active Substance: TELAPREVIR
     Indication: HEPATITIS C
     Dosage: MG PO
     Route: 048
     Dates: start: 20130701

REACTIONS (1)
  - Rash [None]

NARRATIVE: CASE EVENT DATE: 20130703
